FAERS Safety Report 5931548-6 (Version None)
Quarter: 2008Q4

REPORT INFORMATION
  Report Type: 
  Country: None (occurrence: None)
  Receive Date: 20081027
  Receipt Date: 20081020
  Transmission Date: 20090506
  Serious: Yes (Hospitalization)
  Sender: FDA-Public Use
  Company Number: B0542444A

PATIENT
  Age: 32 Year
  Sex: Male

DRUGS (2)
  1. AMOXICILLIN TRIHYDRATE [Suspect]
     Indication: TOOTHACHE
     Route: 048
     Dates: start: 20080827, end: 20080827
  2. IBUPROFENE [Suspect]
     Indication: TOOTHACHE
     Route: 048
     Dates: start: 20080827, end: 20080827

REACTIONS (6)
  - DYSPNOEA [None]
  - FACE OEDEMA [None]
  - FEELING HOT [None]
  - SKIN TIGHTNESS [None]
  - TACHYCARDIA [None]
  - URTICARIA [None]
